FAERS Safety Report 20823366 (Version 1)
Quarter: 2022Q2

REPORT INFORMATION
  Report Type: Other
  Country: US (occurrence: None)
  Receive Date: 20220513
  Receipt Date: 20220513
  Transmission Date: 20220720
  Serious: Yes (Hospitalization)
  Sender: FDA-Public Use
  Company Number: US-ROCHE-3093859

PATIENT
  Age: 64 Year
  Sex: Female
  Weight: 45.400 kg

DRUGS (3)
  1. OCREVUS [Suspect]
     Active Substance: OCRELIZUMAB
     Indication: Multiple sclerosis
     Dosage: INFUSE 300MG DAY 1, INFUSE 300MG DAY 15, INFUSE 600MG INTRAVENOUSLY EVERY 6 MONTH(S)
     Route: 042
  2. BACLOFEN [Concomitant]
     Active Substance: BACLOFEN
  3. GABAPENTIN [Concomitant]
     Active Substance: GABAPENTIN

REACTIONS (4)
  - Diverticulitis [Recovered/Resolved]
  - Intestinal perforation [Not Recovered/Not Resolved]
  - Sepsis [Recovered/Resolved]
  - Alopecia [Not Recovered/Not Resolved]

NARRATIVE: CASE EVENT DATE: 20200401
